FAERS Safety Report 6190679-9 (Version None)
Quarter: 2009Q2

REPORT INFORMATION
  Report Type: 
  Country: None (occurrence: None)
  Receive Date: 20090514
  Receipt Date: 20090505
  Transmission Date: 20091009
  Serious: Yes (Other)
  Sender: FDA-Public Use
  Company Number: US-SANOFI-SYNTHELABO-A03200901462

PATIENT
  Sex: Female
  Weight: 58.1 kg

DRUGS (13)
  1. FLUOROURACIL [Suspect]
     Indication: COLON CANCER STAGE III
     Route: 042
  2. LEUCOVORIN CALCIUM [Suspect]
     Indication: COLON CANCER STAGE III
     Route: 042
  3. ELOXATIN [Suspect]
     Indication: COLON CANCER STAGE III
     Dosage: 155 MG DAY ONE OF EACH CYCLE EVERY TWO WEEKS
     Route: 042
     Dates: start: 20090304, end: 20090317
  4. POTASSIUM CHLORIDE [Concomitant]
     Indication: BLOOD POTASSIUM DECREASED
     Route: 065
     Dates: start: 20090316, end: 20090319
  5. COLACE OR SENEKOT [Concomitant]
     Indication: CONSTIPATION
     Route: 065
     Dates: start: 20090316
  6. HYDROCHLOROTHIAZIDE [Concomitant]
     Indication: HYPERTENSION
     Route: 048
     Dates: start: 20090317
  7. HYDROCHLOROTHIAZIDE [Concomitant]
     Route: 048
     Dates: end: 20090310
  8. LOPRESSOR [Concomitant]
     Indication: HYPERTENSION
     Route: 048
     Dates: start: 20090317
  9. LOPRESSOR [Concomitant]
     Route: 048
     Dates: end: 20090310
  10. MAGNESIUM SULFATE [Suspect]
     Dosage: UNK
     Route: 065
     Dates: start: 20090317
  11. BENADRYL [Suspect]
     Indication: DRUG USE FOR UNKNOWN INDICATION
     Dosage: UNK
     Route: 065
     Dates: start: 20090317
  12. DECADRON [Suspect]
     Indication: DRUG USE FOR UNKNOWN INDICATION
     Dosage: UNK
     Route: 042
     Dates: start: 20090317
  13. ALOXI [Suspect]
     Indication: DRUG USE FOR UNKNOWN INDICATION
     Dosage: UNK
     Route: 042
     Dates: start: 20090317

REACTIONS (10)
  - ABASIA [None]
  - DIZZINESS [None]
  - DYSARTHRIA [None]
  - DYSPHONIA [None]
  - HYPERSENSITIVITY [None]
  - LARYNGOSPASM [None]
  - MUSCLE SPASMS [None]
  - PARAESTHESIA [None]
  - SPEECH DISORDER [None]
  - TEMPERATURE INTOLERANCE [None]
